FAERS Safety Report 16381418 (Version 3)
Quarter: 2019Q3

REPORT INFORMATION
  Report Type: Spontaneous
  Country: HR (occurrence: HR)
  Receive Date: 20190603
  Receipt Date: 20190819
  Transmission Date: 20191004
  Serious: Yes (Hospitalization, Other)
  Sender: FDA-Public Use
  Company Number: HR-TEVA-2019-HR-1056710

PATIENT
  Age: 48 Year
  Sex: Male
  Weight: 86 kg

DRUGS (3)
  1. IBUPROFEN. [Suspect]
     Active Substance: IBUPROFEN
     Indication: SPINAL PAIN
     Dosage: 600 MG, TID
     Route: 048
     Dates: start: 201811, end: 20181126
  2. DICLOFENAC TABLET [Suspect]
     Active Substance: DICLOFENAC
     Indication: SPINAL DISORDER
     Dosage: 3 DF, QD
     Route: 065
  3. DIAZEPAM SOLUTION FOR INJECTION [Concomitant]
     Indication: PRODUCT USED FOR UNKNOWN INDICATION
     Dosage: UNK
     Route: 030

REACTIONS (5)
  - Melaena [Unknown]
  - Therapeutic product effect incomplete [Unknown]
  - Gastritis erosive [Unknown]
  - Faeces discoloured [Recovering/Resolving]
  - Gastric ulcer [Unknown]

NARRATIVE: CASE EVENT DATE: 201811
